FAERS Safety Report 4447521-3 (Version None)
Quarter: 2004Q3

REPORT INFORMATION
  Report Type: 
  Country: None (occurrence: None)
  Receive Date: 20040823
  Receipt Date: 20040706
  Transmission Date: 20050211
  Serious: No
  Sender: FDA-Public Use
  Company Number: PHEH2004US06033

PATIENT
  Age: 63 Year
  Sex: Female
  Weight: 52.2 kg

DRUGS (6)
  1. ZELNORM [Suspect]
     Indication: IRRITABLE BOWEL SYNDROME
     Dosage: 3 MG, BID, ORAL
     Route: 048
     Dates: start: 20040501
  2. NEXIUM [Concomitant]
  3. ZOCOR [Concomitant]
  4. REGELAN (CLOFIBRATE) [Concomitant]
  5. PREMARIN [Concomitant]
  6. ZYRTEC-D (CETIRIZINE HYDROCHLORIDE) [Concomitant]

REACTIONS (1)
  - RASH PRURITIC [None]
